FAERS Safety Report 8283944-2 (Version None)
Quarter: 2012Q2

REPORT INFORMATION
  Report Type: 
  Country: None (occurrence: None)
  Receive Date: 20120413
  Receipt Date: 20120405
  Transmission Date: 20120825
  Serious: Yes (Hospitalization)
  Sender: FDA-Public Use
  Company Number: US-ABBOTT-12P-163-0922226-00

PATIENT
  Sex: Female
  Weight: 65.376 kg

DRUGS (6)
  1. MULTI-VITAMINS [Concomitant]
     Indication: PRODUCT USED FOR UNKNOWN INDICATION
     Route: 048
     Dates: start: 20110815, end: 20120209
  2. ALCOHOL [Concomitant]
     Indication: PRODUCT USED FOR UNKNOWN INDICATION
     Route: 048
     Dates: start: 20110712, end: 20110810
  3. FOLIC ACID [Concomitant]
     Indication: PRODUCT USED FOR UNKNOWN INDICATION
     Route: 048
     Dates: start: 20110815, end: 20120209
  4. HUMIRA [Suspect]
     Indication: CROHN'S DISEASE
     Route: 058
     Dates: start: 20110712, end: 20120129
  5. INFLUENZA VACCINE [Concomitant]
     Indication: ANTIVIRAL PROPHYLAXIS
     Route: 050
     Dates: start: 20110930, end: 20110930
  6. TYLENOL COLD + FLU NIGHTTIME [Concomitant]
     Indication: PRODUCT USED FOR UNKNOWN INDICATION
     Dosage: 2 TBSP 3 X TOTAL
     Dates: start: 20111018, end: 20111020

REACTIONS (10)
  - DYSPEPSIA [None]
  - VOMITING [None]
  - GASTROENTERITIS VIRAL [None]
  - RESPIRATORY TRACT INFECTION [None]
  - HEPATIC ENZYME INCREASED [None]
  - CROHN'S DISEASE [None]
  - PYREXIA [None]
  - SINUS HEADACHE [None]
  - PRE-ECLAMPSIA [None]
  - NAUSEA [None]
